FAERS Safety Report 6328374-5 (Version None)
Quarter: 2009Q3

REPORT INFORMATION
  Report Type: 
  Country: None (occurrence: None)
  Receive Date: 20090825
  Receipt Date: 20090401
  Transmission Date: 20100115
  Serious: No
  Sender: FDA-Public Use
  Company Number: US-ABBOTT-09P-163-0566300-00

PATIENT
  Sex: Female
  Weight: 49.94 kg

DRUGS (6)
  1. SYNTHROID [Suspect]
     Indication: HYPOTHYROIDISM
     Route: 048
     Dates: start: 19860101, end: 20070101
  2. SYNTHROID [Suspect]
     Route: 048
     Dates: start: 20070101, end: 20070101
  3. SYNTHROID [Suspect]
     Route: 048
     Dates: start: 20070101, end: 20070101
  4. SYNTHROID [Suspect]
     Dates: start: 20070101
  5. ASPIRIN [Concomitant]
     Indication: INFLAMMATION
  6. BONIVA [Concomitant]
     Indication: OSTEOPOROSIS
     Route: 048

REACTIONS (3)
  - BLOOD THYROID STIMULATING HORMONE DECREASED [None]
  - LETHARGY [None]
  - WEIGHT INCREASED [None]
